FAERS Safety Report 24980237 (Version 1)
Quarter: 2025Q1

REPORT INFORMATION
  Report Type: Spontaneous
  Country: CA (occurrence: CA)
  Receive Date: 20250218
  Receipt Date: 20250218
  Transmission Date: 20250408
  Serious: Yes (Life-Threatening)
  Sender: ACCORD
  Company Number: None

PATIENT
  Age: 75 Year
  Sex: Female
  Weight: 75.75 kg

DRUGS (7)
  1. ROSUVASTATIN CALCIUM [Suspect]
     Active Substance: ROSUVASTATIN CALCIUM
     Indication: Arteriosclerosis
     Route: 048
  2. CRESTOR [Concomitant]
     Active Substance: ROSUVASTATIN CALCIUM
  3. MIRABEGRON [Concomitant]
     Active Substance: MIRABEGRON
  4. NORVASC [Concomitant]
     Active Substance: AMLODIPINE BESYLATE
  5. OLMESARTAN MEDOXOMIL [Concomitant]
     Active Substance: OLMESARTAN MEDOXOMIL
  6. SYNTHROID [Concomitant]
     Active Substance: LEVOTHYROXINE SODIUM
  7. PANTOPRAZOLE MAGNESIUM [Concomitant]
     Active Substance: PANTOPRAZOLE MAGNESIUM

REACTIONS (5)
  - Dyspnoea [Recovered/Resolved]
  - Reaction to preservatives [Recovered/Resolved]
  - Anaphylactic reaction [Recovered/Resolved]
  - Throat tightness [Recovered/Resolved]
  - Nausea [Recovered/Resolved]
